FAERS Safety Report 7443466-5 (Version None)
Quarter: 2011Q2

REPORT INFORMATION
  Report Type: 
  Country: None (occurrence: None)
  Receive Date: 20110428
  Receipt Date: 20110415
  Transmission Date: 20111010
  Serious: Yes (Other)
  Sender: FDA-Public Use
  Company Number: US-BAYER-2011-033780

PATIENT
  Age: 52 Year
  Sex: Male
  Weight: 88 kg

DRUGS (7)
  1. ALAHIST [Concomitant]
     Dosage: UNK
  2. ONE-A-DAY MEN'S 50 + ADVANTAGE [Suspect]
     Indication: VITAMIN SUPPLEMENTATION
     Dosage: COUNT BOTTLE 50S
     Route: 048
     Dates: start: 20100101, end: 20101201
  3. ALLOPURINOL [Concomitant]
     Dosage: UNK
  4. CARVEDILOL [Concomitant]
     Dosage: UNK
  5. TRICOR [Concomitant]
     Dosage: UNK
  6. AVALIDE [Concomitant]
     Dosage: UNK
  7. LOSARTAN POTASSIUM [Concomitant]
     Dosage: UNK

REACTIONS (4)
  - RENAL DISORDER [None]
  - DIZZINESS [None]
  - BLOOD CALCIUM INCREASED [None]
  - NAUSEA [None]
